FAERS Safety Report 18549847 (Version 2)
Quarter: 2021Q1

REPORT INFORMATION
  Report Type: Spontaneous
  Country: US (occurrence: US)
  Receive Date: 20201126
  Receipt Date: 20210311
  Transmission Date: 20210419
  Serious: Yes (Other)
  Sender: FDA-Public Use
  Company Number: US-PFIZER INC-2020466225

PATIENT
  Age: 77 Year
  Sex: Female

DRUGS (1)
  1. IBRANCE [Suspect]
     Active Substance: PALBOCICLIB
     Dosage: 125 MG
     Dates: start: 20191127

REACTIONS (5)
  - Macular degeneration [Unknown]
  - Pruritus [Unknown]
  - Anxiety [Unknown]
  - Urticaria [Unknown]
  - Retinal haemorrhage [Unknown]
